FAERS Safety Report 7571859-4 (Version None)
Quarter: 2011Q2

REPORT INFORMATION
  Report Type: 
  Country: None (occurrence: None)
  Receive Date: 20110624
  Receipt Date: 20100706
  Transmission Date: 20111010
  Serious: No
  Sender: FDA-Public Use
  Company Number: A0850656A

PATIENT
  Age: 70 Year
  Sex: Female

DRUGS (9)
  1. VERAMYST [Suspect]
     Indication: EAR CONGESTION
     Dosage: 1PUFF PER DAY
     Route: 045
     Dates: start: 20090101
  2. UNKNOWN MEDICATION [Concomitant]
  3. VITAMIN TAB [Concomitant]
  4. SODIUM CHLORIDE [Concomitant]
     Route: 045
  5. LODINE XL [Concomitant]
  6. ENBREL [Concomitant]
  7. PRILOSEC [Concomitant]
  8. FOLIC ACID [Concomitant]
  9. METHOTREXATE [Concomitant]

REACTIONS (2)
  - EPISTAXIS [None]
  - PRODUCT QUALITY ISSUE [None]
